FAERS Safety Report 7028010-9 (Version None)
Quarter: 2010Q4

REPORT INFORMATION
  Report Type: 
  Country: None (occurrence: None)
  Receive Date: 20101005
  Receipt Date: 20100923
  Transmission Date: 20110411
  Serious: Yes (Hospitalization, Other)
  Sender: FDA-Public Use
  Company Number: US-US-EMD SERONO, INC.-7013241

PATIENT
  Sex: Female
  Weight: 75 kg

DRUGS (5)
  1. REBIF [Suspect]
     Indication: MULTIPLE SCLEROSIS
     Route: 058
     Dates: start: 20070115
  2. AMPYRA [Concomitant]
     Dates: start: 20100601, end: 20100819
  3. NORVASC [Concomitant]
     Indication: HYPERTENSION
  4. XANAX [Concomitant]
  5. ZOLOFT [Concomitant]

REACTIONS (7)
  - CHOLECYSTITIS [None]
  - DIZZINESS [None]
  - HEADACHE [None]
  - LOSS OF CONSCIOUSNESS [None]
  - NAUSEA [None]
  - PAIN [None]
  - VOMITING [None]
